FAERS Safety Report 17801473 (Version 1)
Quarter: 2020Q2

REPORT INFORMATION
  Report Type: Other
  Country: JP (occurrence: JP)
  Receive Date: 20200519
  Receipt Date: 20200519
  Transmission Date: 20200714
  Serious: Yes (Hospitalization, Other)
  Sender: FDA-Public Use
  Company Number: JP-DENTSPLY-2020SCDP000171

PATIENT
  Age: 5 Month
  Sex: Female
  Weight: 4.66 kg

DRUGS (2)
  1. LIDOCAINE. [Suspect]
     Active Substance: LIDOCAINE
     Indication: SEIZURE
     Dosage: 3 DOSAGE FORM, LIDOCAINE PATCH (18MG PER SHEET) WAS ALSO PERFORMED 3 SHEETS PER DAY,PATCH
     Route: 062
  2. VIGABATRIN. [Concomitant]
     Active Substance: VIGABATRIN
     Indication: SEIZURE
     Dosage: INCREASED VGB

REACTIONS (2)
  - Mood altered [Unknown]
  - Hyperuricaemia [None]
